FAERS Safety Report 10011130 (Version 1)
Quarter: 2014Q1

REPORT INFORMATION
  Report Type: Spontaneous
  Country: IE (occurrence: None)
  Receive Date: 20140312
  Receipt Date: 20140312
  Transmission Date: 20141002
  Serious: Yes (Death)
  Sender: FDA-Public Use
  Company Number: BD-2014-0017

PATIENT
  Age: 61 Year
  Sex: Male

DRUGS (2)
  1. DIPHENHYDRAMINE [Suspect]
     Indication: PRODUCT USED FOR UNKNOWN INDICATION
  2. DOXYLAMINE (DOXYLAMINE) [Suspect]
     Indication: PRODUCT USED FOR UNKNOWN INDICATION

REACTIONS (7)
  - Toxicity to various agents [None]
  - Completed suicide [None]
  - Visceral congestion [None]
  - Pulmonary oedema [None]
  - Brain oedema [None]
  - Oedematous kidney [None]
  - Intra-abdominal haemorrhage [None]
